FAERS Safety Report 8854096 (Version 2)
Quarter: 2014Q1

REPORT INFORMATION
  Report Type: Spontaneous
  Country: US (occurrence: US)
  Receive Date: 20121022
  Receipt Date: 20140122
  Transmission Date: 20141002
  Serious: Yes (Other)
  Sender: FDA-Public Use
  Company Number: US-BAYER-2012-107946

PATIENT
  Age: 26 Year
  Sex: Female

DRUGS (6)
  1. OCELLA [Suspect]
     Dosage: UNK
     Dates: start: 201004, end: 201108
  2. YASMIN [Suspect]
     Dosage: UNK
     Dates: start: 201004, end: 201108
  3. LEXAPRO [Concomitant]
     Dosage: 20 MG, UNK
     Route: 048
  4. SPIRONOLACTONE [Concomitant]
     Dosage: 50 MG, UNK
     Route: 048
  5. PRILOSEC [Concomitant]
  6. OMEPRAZOLE [Concomitant]

REACTIONS (3)
  - Cholecystitis chronic [None]
  - Cholecystitis chronic [None]
  - Biliary dyskinesia [None]
